FAERS Safety Report 7888466-6 (Version None)
Quarter: 2011Q4

REPORT INFORMATION
  Report Type: 
  Country: None (occurrence: None)
  Receive Date: 20111103
  Receipt Date: 20111031
  Transmission Date: 20120403
  Serious: Yes (Death, Other)
  Sender: FDA-Public Use
  Company Number: PHHY2011CA95427

PATIENT
  Sex: Female

DRUGS (10)
  1. VITAMIN D [Concomitant]
  2. SEROQUEL XR [Concomitant]
     Dates: start: 20090422
  3. OMEPRAZOLE [Concomitant]
  4. SERTRALINE HYDROCHLORIDE [Concomitant]
     Dates: start: 20061218
  5. CLOZARIL [Suspect]
     Indication: SCHIZOAFFECTIVE DISORDER
     Dosage: 50 MG QAM AND 400MG QHS
     Route: 048
     Dates: start: 19951019
  6. COGENTIN [Concomitant]
     Dates: start: 20071231
  7. IRON [Concomitant]
  8. FERROUS GLUCONATE [Concomitant]
  9. VITAMIN B-12 [Concomitant]
  10. FOLIC ACID [Concomitant]

REACTIONS (2)
  - PULMONARY EMBOLISM [None]
  - SYNCOPE [None]
